FAERS Safety Report 5342411-6 (Version None)
Quarter: 2007Q2

REPORT INFORMATION
  Report Type: 
  Country: None (occurrence: None)
  Receive Date: 20070601
  Receipt Date: 20070523
  Transmission Date: 20071010
  Serious: Yes (Other)
  Sender: FDA-Public Use
  Company Number: GB-ROCHE-484190

PATIENT
  Age: 41 Year
  Sex: Female
  Weight: 114.5 kg

DRUGS (4)
  1. XENICAL [Suspect]
     Indication: OBESITY
     Route: 048
     Dates: start: 20070203, end: 20070210
  2. EPILIM [Concomitant]
     Indication: EPILEPSY
     Route: 048
  3. LAMOTRIGINE [Concomitant]
     Indication: EPILEPSY
     Route: 048
  4. CITALOPRAM HYDROBROMIDE [Concomitant]

REACTIONS (1)
  - EPILEPSY [None]
